FAERS Safety Report 14571427 (Version 1)
Quarter: 2018Q1

REPORT INFORMATION
  Report Type: Spontaneous
  Country: US (occurrence: US)
  Receive Date: 20180223
  Receipt Date: 20180223
  Transmission Date: 20180509
  Serious: Yes (Hospitalization)
  Sender: FDA-Public Use
  Company Number: None

PATIENT
  Age: 70 Year
  Sex: Male
  Weight: 92.7 kg

DRUGS (11)
  1. METHOTREXATE. [Suspect]
     Active Substance: METHOTREXATE
     Dates: end: 20180117
  2. VINCRISTINE SULFATE. [Suspect]
     Active Substance: VINCRISTINE SULFATE
     Dates: end: 20180124
  3. LASIX [Concomitant]
     Active Substance: FUROSEMIDE
  4. CYTARABINE. [Suspect]
     Active Substance: CYTARABINE
     Dates: end: 20180109
  5. THIOGUANINE (6-TG) [Suspect]
     Active Substance: THIOGUANINE ANHYDROUS
     Dates: end: 20180122
  6. VFEND [Concomitant]
     Active Substance: VORICONAZOLE
  7. DOXORUBICIN HYDROCHLORIDE. [Suspect]
     Active Substance: DOXORUBICIN HYDROCHLORIDE
     Dates: end: 20171226
  8. ONCASPAR [Suspect]
     Active Substance: PEGASPARGASE
     Dates: end: 20180124
  9. CYCLOPHOSPHAMIDE. [Suspect]
     Active Substance: CYCLOPHOSPHAMIDE
     Dates: end: 20180109
  10. VORICONAZOLE. [Concomitant]
     Active Substance: VORICONAZOLE
  11. FUROSEMIDE. [Concomitant]
     Active Substance: FUROSEMIDE

REACTIONS (12)
  - Neutropenia [None]
  - Pulmonary mass [None]
  - Skin lesion [None]
  - Cardio-respiratory arrest [None]
  - Toothache [None]
  - Blood culture positive [None]
  - Fungal infection [None]
  - Seizure [None]
  - Pyrexia [None]
  - Apnoea [None]
  - Candida infection [None]
  - Vasculitis [None]

NARRATIVE: CASE EVENT DATE: 20180202
